FAERS Safety Report 16460713 (Version 1)
Quarter: 2019Q2

REPORT INFORMATION
  Report Type: Spontaneous
  Country: US (occurrence: US)
  Receive Date: 20190620
  Receipt Date: 20190620
  Transmission Date: 20190711
  Serious: No
  Sender: FDA-Public Use
  Company Number: US-AKRON, INC.-2069431

PATIENT
  Sex: Female

DRUGS (1)
  1. KETOTIFEN [Suspect]
     Active Substance: KETOTIFEN
     Route: 047

REACTIONS (4)
  - Eye pain [Unknown]
  - Pain [Unknown]
  - Eye irritation [Unknown]
  - Photophobia [Unknown]
